FAERS Safety Report 21490399 (Version 1)
Quarter: 2022Q4

REPORT INFORMATION
  Report Type: Spontaneous
  Country: US (occurrence: US)
  Receive Date: 20221021
  Receipt Date: 20221021
  Transmission Date: 20230113
  Serious: Yes (Other)
  Sender: FDA-Public Use
  Company Number: US-JNJFOC-20221029995

PATIENT
  Age: 44 Year
  Sex: Male

DRUGS (2)
  1. REMICADE [Suspect]
     Active Substance: INFLIXIMAB
     Indication: Inflammatory bowel disease
     Route: 041
  2. PREDNISONE [Concomitant]
     Active Substance: PREDNISONE

REACTIONS (8)
  - Myocarditis [Unknown]
  - Pneumocystis jirovecii pneumonia [Unknown]
  - Histoplasmosis [Unknown]
  - Splenomegaly [Unknown]
  - Asthenia [Unknown]
  - Colitis [Unknown]
  - Epstein-Barr virus infection [Unknown]
  - Myalgia [Unknown]
